FAERS Safety Report 22540067 (Version 2)
Quarter: 2023Q2

REPORT INFORMATION
  Report Type: Other
  Country: ES (occurrence: None)
  Receive Date: 20230609
  Receipt Date: 20230612
  Transmission Date: 20230722
  Serious: Yes (Death)
  Sender: FDA-Public Use
  Company Number: ES-ROCHE-3364891

PATIENT
  Age: 38 Year
  Sex: Female

DRUGS (5)
  1. BEVACIZUMAB [Suspect]
     Active Substance: BEVACIZUMAB
     Indication: Glioma
     Route: 065
  2. LACOSAMIDE [Concomitant]
     Active Substance: LACOSAMIDE
  3. ELTROMBOPAG [Concomitant]
     Active Substance: ELTROMBOPAG
     Dates: start: 20210610
  4. DEXAMETHASONE [Concomitant]
     Active Substance: DEXAMETHASONE
  5. LOMUSTINE [Concomitant]
     Active Substance: LOMUSTINE

REACTIONS (1)
  - Disease progression [Fatal]

NARRATIVE: CASE EVENT DATE: 20220512
